FAERS Safety Report 8510473-0 (Version None)
Quarter: 2012Q3

REPORT INFORMATION
  Report Type: 
  Country: None (occurrence: None)
  Receive Date: 20120715
  Receipt Date: 20120711
  Transmission Date: 20120928
  Serious: Yes (Other)
  Sender: FDA-Public Use
  Company Number: GXKR2012DE002205

PATIENT
  Age: 36 Year
  Sex: Male

DRUGS (1)
  1. METHOTREXATE [Suspect]
     Dosage: 10 MG, QW
     Route: 048
     Dates: end: 20120501

REACTIONS (4)
  - SLEEP DISORDER [None]
  - DYSARTHRIA [None]
  - APHASIA [None]
  - LOSS OF CONSCIOUSNESS [None]
